FAERS Safety Report 9356149 (Version 3)
Quarter: 2013Q3

REPORT INFORMATION
  Report Type: Spontaneous
  Country: FR (occurrence: FR)
  Receive Date: 20130619
  Receipt Date: 20130806
  Transmission Date: 20140515
  Serious: Yes (Hospitalization)
  Sender: FDA-Public Use
  Company Number: FR-TEVA-413260ISR

PATIENT
  Age: 72 Year
  Sex: Female

DRUGS (10)
  1. FUROSEMIDE TEVA 40 MG, SCORED TABLET [Suspect]
     Dosage: 80 MILLIGRAM DAILY;
     Route: 048
     Dates: start: 20130601, end: 20130607
  2. FUROSEMIDE [Concomitant]
     Dosage: 40 MILLIGRAM DAILY;
  3. TRIATEC [Concomitant]
     Dosage: 10 MILLIGRAM DAILY;
  4. LEVOTHYROX [Concomitant]
     Dosage: 50 MICROGRAM DAILY;
  5. PROZAC [Concomitant]
     Dosage: 20 MILLIGRAM DAILY;
  6. DEBRIDAT [Concomitant]
     Dosage: 600 MILLIGRAM DAILY;
  7. SPASFON [Concomitant]
  8. IMOVANE [Concomitant]
     Dosage: 7.5 MILLIGRAM DAILY;
  9. VOGALENE [Concomitant]
     Dosage: 22.5 MILLIGRAM DAILY;
  10. FORLAX [Concomitant]

REACTIONS (5)
  - Generalised oedema [Recovered/Resolved]
  - Cardiac failure [Recovered/Resolved]
  - Somnolence [Recovered/Resolved]
  - Confusional state [Recovered/Resolved]
  - Generalised oedema [Recovered/Resolved]
